FAERS Safety Report 5297527-X (Version None)
Quarter: 2007Q2

REPORT INFORMATION
  Report Type: 
  Country: None (occurrence: None)
  Receive Date: 20070416
  Receipt Date: 20070410
  Transmission Date: 20071010
  Serious: Yes (Other)
  Sender: FDA-Public Use
  Company Number: GB-JNJFOC-20070304734

PATIENT
  Sex: Female
  Weight: 54.43 kg

DRUGS (1)
  1. RISPERDAL CONSTA [Suspect]
     Indication: DRUG USE FOR UNKNOWN INDICATION
     Route: 030

REACTIONS (4)
  - AMENORRHOEA [None]
  - BLOOD PROLACTIN INCREASED [None]
  - BREAST SWELLING [None]
  - LOSS OF LIBIDO [None]
